FAERS Safety Report 11811524 (Version 1)
Quarter: 2015Q4

REPORT INFORMATION
  Report Type: Spontaneous
  Country: US (occurrence: US)
  Receive Date: 20151208
  Receipt Date: 20151208
  Transmission Date: 20160305
  Serious: Yes (Death)
  Sender: FDA-Public Use
  Company Number: US-PFIZER INC-2015426344

PATIENT
  Age: 47 Year
  Sex: Female

DRUGS (5)
  1. ESZOPICLONE. [Suspect]
     Active Substance: ESZOPICLONE
  2. LAMOTRIGINE. [Suspect]
     Active Substance: LAMOTRIGINE
  3. ALPRAZOLAM. [Suspect]
     Active Substance: ALPRAZOLAM
  4. INSULIN [Suspect]
     Active Substance: INSULIN NOS
  5. FLUOXETINE [Suspect]
     Active Substance: FLUOXETINE HYDROCHLORIDE

REACTIONS (1)
  - Completed suicide [Fatal]

NARRATIVE: CASE EVENT DATE: 2014
